FAERS Safety Report 5817688-0 (Version None)
Quarter: 2008Q3

REPORT INFORMATION
  Report Type: 
  Country: None (occurrence: None)
  Receive Date: 20080722
  Receipt Date: 20070712
  Transmission Date: 20090109
  Serious: No
  Sender: FDA-Public Use
  Company Number: US-TYCO HEALTHCARE/MALLINCKRODT-T200700794

PATIENT

DRUGS (11)
  1. OCTREOSCAN [Suspect]
     Indication: SOMATOSTATIN RECEPTOR SCAN
     Dosage: 5.2 MCI, SINGLE
     Route: 042
     Dates: start: 20061226, end: 20061226
  2. OCTREOSCAN [Suspect]
     Dosage: 5.2 MCI, SINGLE
     Route: 042
     Dates: start: 20070711, end: 20070711
  3. MARINOL [Concomitant]
     Indication: NAUSEA
  4. ROBAXIN [Concomitant]
     Indication: PAIN
  5. BACTRIM [Concomitant]
     Indication: CHEMOTHERAPY
  6. CYCLOPHOSPHAMIDE [Concomitant]
     Indication: NEOPLASM
     Dates: end: 20070601
  7. CALCIUM CARBONATE [Concomitant]
  8. CALCIFEROL [Concomitant]
  9. ZOMETA [Concomitant]
     Indication: NEOPLASM
     Dosage: ONCE A MONTH
     Route: 042
  10. SYNTHROID [Concomitant]
     Indication: HYPOTHYROIDISM
  11. ^PHALAMID^ [Concomitant]

REACTIONS (1)
  - FEELING ABNORMAL [None]
